FAERS Safety Report 13655683 (Version 1)
Quarter: 2017Q2

REPORT INFORMATION
  Report Type: Spontaneous
  Country: US (occurrence: US)
  Receive Date: 20170614
  Receipt Date: 20170614
  Transmission Date: 20170830
  Serious: No
  Sender: FDA-Public Use
  Company Number: None

PATIENT
  Age: 77 Year
  Sex: Female

DRUGS (7)
  1. DEXAMETHASONE. [Concomitant]
     Active Substance: DEXAMETHASONE
  2. BENZONATATE. [Concomitant]
     Active Substance: BENZONATATE
  3. METOPROLOL TARTRATE. [Concomitant]
     Active Substance: METOPROLOL TARTRATE
  4. DARZALEX [Concomitant]
     Active Substance: DARATUMUMAB
  5. VITAMIN D [Concomitant]
     Active Substance: CHOLECALCIFEROL
  6. NINLARO [Suspect]
     Active Substance: IXAZOMIB
     Indication: PLASMA CELL MYELOMA
     Dosage: 1 3MG TABLET ON DAYS 1, 8, AND 15 ORALLY
     Route: 048
     Dates: start: 20170525
  7. AZITHROMYCIN ANHYDROUS. [Concomitant]
     Active Substance: AZITHROMYCIN ANHYDROUS

REACTIONS (3)
  - Peripheral swelling [None]
  - Joint swelling [None]
  - Fatigue [None]

NARRATIVE: CASE EVENT DATE: 20170613
